FAERS Safety Report 15852584 (Version 1)
Quarter: 2019Q1

REPORT INFORMATION
  Report Type: Spontaneous
  Country: JP (occurrence: JP)
  Receive Date: 20190122
  Receipt Date: 20190122
  Transmission Date: 20190417
  Serious: Yes (Other)
  Sender: FDA-Public Use
  Company Number: JP-BRISTOL-MYERS SQUIBB COMPANY-BMS-2019-004301

PATIENT
  Age: 54 Year
  Sex: Female

DRUGS (1)
  1. SPRYCEL [Suspect]
     Active Substance: DASATINIB
     Indication: LYMPHOMA
     Dosage: UNK
     Route: 065

REACTIONS (2)
  - Graft versus host disease [Recovering/Resolving]
  - Pleural effusion [Recovering/Resolving]
